FAERS Safety Report 10152210 (Version 2)
Quarter: 2014Q2

REPORT INFORMATION
  Report Type: Spontaneous
  Country: US (occurrence: US)
  Receive Date: 20140505
  Receipt Date: 20140611
  Transmission Date: 20141212
  Serious: No
  Sender: FDA-Public Use
  Company Number: US-009507513-1405USA001933

PATIENT
  Sex: Male
  Weight: 124.26 kg

DRUGS (2)
  1. CLARITIN REDITABS [Suspect]
     Indication: RHINORRHOEA
     Dosage: UNK, TABLET THAT DISSOLVE ON YOUR TONGUE
     Route: 048
  2. CLARITIN REDITABS [Suspect]
     Indication: SNEEZING

REACTIONS (2)
  - Inappropriate schedule of drug administration [Unknown]
  - Drug ineffective [Unknown]
